FAERS Safety Report 4308483-2 (Version None)
Quarter: 2004Q1

REPORT INFORMATION
  Report Type: 
  Country: None (occurrence: None)
  Receive Date: 20040301
  Receipt Date: 20040225
  Transmission Date: 20041129
  Serious: Yes (Life-Threatening, Hospitalization)
  Sender: FDA-Public Use
  Company Number: FR-ROCHE-359750

PATIENT
  Age: 40 Year
  Sex: Female

DRUGS (1)
  1. LOXEN [Suspect]
     Dosage: THERAPY DURATION WAS LESS THAN A MONTH.
     Route: 042
     Dates: start: 20040207, end: 20040215

REACTIONS (2)
  - COMPLICATIONS OF MATERNAL EXPOSURE TO THERAPEUTIC DRUGS [None]
  - PULMONARY EMBOLISM [None]
